FAERS Safety Report 9782263 (Version 2)
Quarter: 2013Q4

REPORT INFORMATION
  Report Type: Spontaneous
  Country: US (occurrence: US)
  Receive Date: 20131226
  Receipt Date: 20131226
  Transmission Date: 20140711
  Serious: Yes (Hospitalization)
  Sender: FDA-Public Use
  Company Number: US-JNJFOC-20131019220

PATIENT
  Age: 78 Year
  Sex: Female
  Weight: 56.7 kg

DRUGS (10)
  1. XARELTO [Suspect]
     Indication: THROMBOSIS PROPHYLAXIS
     Route: 048
     Dates: start: 20131124, end: 20131125
  2. XARELTO [Suspect]
     Indication: THROMBOSIS PROPHYLAXIS
     Route: 048
     Dates: start: 20130920, end: 20131117
  3. XARELTO [Suspect]
     Indication: THROMBOSIS
     Route: 048
     Dates: start: 20130920, end: 20131117
  4. XARELTO [Suspect]
     Indication: THROMBOSIS
     Route: 048
     Dates: start: 20131124, end: 20131125
  5. SIMVASTATIN [Concomitant]
     Indication: BLOOD CHOLESTEROL
     Route: 048
     Dates: start: 2010
  6. TRAVATAN [Concomitant]
     Indication: GLAUCOMA
     Dosage: ONE DROP IN EACY EYE ONCE NIGHTLY
     Route: 047
     Dates: start: 2011
  7. ALENDRONATE [Concomitant]
     Indication: BONE DISORDER
     Route: 048
  8. CITRACAL [Concomitant]
     Route: 065
  9. COQ10 [Concomitant]
     Route: 065
  10. ATELVIA [Concomitant]
     Route: 065

REACTIONS (7)
  - Cerebrovascular accident [Unknown]
  - Hypophagia [Not Recovered/Not Resolved]
  - Parosmia [Not Recovered/Not Resolved]
  - Nausea [Not Recovered/Not Resolved]
  - Fatigue [Not Recovered/Not Resolved]
  - Dysgeusia [Not Recovered/Not Resolved]
  - Hypersomnia [Unknown]
